FAERS Safety Report 18538520 (Version 3)
Quarter: 2021Q4

REPORT INFORMATION
  Report Type: Report from Study
  Country: GT (occurrence: GT)
  Receive Date: 20201124
  Receipt Date: 20211216
  Transmission Date: 20220303
  Serious: Yes (Other)
  Sender: FDA-Public Use
  Company Number: GT-NOVARTISPH-NVSC2020GT308599

PATIENT
  Sex: Male

DRUGS (1)
  1. EXFORGE HCT [Suspect]
     Active Substance: AMLODIPINE BESYLATE\HYDROCHLOROTHIAZIDE\VALSARTAN
     Indication: Hypertension
     Dosage: 1 DOSAGE FORM, QD (APPROXIMATELY 2 YEARS AGO)
     Route: 048

REACTIONS (5)
  - Hemiplegia [Unknown]
  - Facial paralysis [Unknown]
  - Monoplegia [Unknown]
  - Speech disorder [Unknown]
  - Micturition urgency [Unknown]
